FAERS Safety Report 4552268-9 (Version None)
Quarter: 2005Q1

REPORT INFORMATION
  Report Type: 
  Country: None (occurrence: None)
  Receive Date: 20050114
  Receipt Date: 20050108
  Transmission Date: 20050727
  Serious: Yes (Other)
  Sender: FDA-Public Use
  Company Number: PHRM2005DZ00503

PATIENT
  Age: 50 Year
  Sex: Female

DRUGS (1)
  1. FORADIL [Suspect]
     Dosage: UNK UG, UNK

REACTIONS (1)
  - GENERALISED OEDEMA [None]
